FAERS Safety Report 4511266-1 (Version None)
Quarter: 2004Q4

REPORT INFORMATION
  Report Type: 
  Country: None (occurrence: None)
  Receive Date: 20041123
  Receipt Date: 20041123
  Transmission Date: 20050328
  Serious: Yes (Life-Threatening, Hospitalization, Other)
  Sender: FDA-Public Use
  Company Number: None

PATIENT
  Sex: Female

DRUGS (4)
  1. CORICIDIN D TABLETS [Suspect]
     Dosage: ORAL
     Route: 048
  2. TRIAMINIC SRT [Concomitant]
  3. TAVIST D [Concomitant]
  4. ALKA-SELTZER PLUS COLD MEDICINE [Concomitant]

REACTIONS (8)
  - AMNESIA [None]
  - BALANCE DISORDER [None]
  - CEREBROVASCULAR ACCIDENT [None]
  - DEMENTIA [None]
  - HEARING IMPAIRED [None]
  - MYOCARDIAL INFARCTION [None]
  - SPEECH DISORDER [None]
  - VISUAL ACUITY REDUCED [None]
